FAERS Safety Report 6732629-X (Version None)
Quarter: 2010Q2

REPORT INFORMATION
  Report Type: 
  Country: None (occurrence: None)
  Receive Date: 20100517
  Receipt Date: 20100510
  Transmission Date: 20101027
  Serious: Yes (Death)
  Sender: FDA-Public Use
  Company Number: 2009SP022491

PATIENT
  Age: 31 Year
  Sex: Female
  Weight: 67.5 kg

DRUGS (5)
  1. IMPLANON [Suspect]
     Indication: CONTRACEPTION
     Dosage: 1 DF; SC; 1 DF;SC
     Route: 058
     Dates: start: 20021001, end: 20060101
  2. IMPLANON [Suspect]
     Indication: CONTRACEPTION
     Dosage: 1 DF; SC; 1 DF;SC
     Route: 058
     Dates: start: 20060101, end: 20100124
  3. IMPLANON [Suspect]
  4. IMPLANON [Suspect]
  5. IMPLANON [Suspect]

REACTIONS (6)
  - COLON CANCER [None]
  - DISEASE COMPLICATION [None]
  - EMPHYSEMATOUS CYSTITIS [None]
  - FISTULA [None]
  - GENERAL PHYSICAL HEALTH DETERIORATION [None]
  - MALIGNANT NEOPLASM PROGRESSION [None]
